FAERS Safety Report 10184223 (Version 1)
Quarter: 2014Q2

REPORT INFORMATION
  Report Type: Spontaneous
  Country: BE (occurrence: BE)
  Receive Date: 20140520
  Receipt Date: 20140520
  Transmission Date: 20141212
  Serious: Yes (Other)
  Sender: FDA-Public Use
  Company Number: BE-DSJP-DSE-2014-108395

PATIENT
  Sex: 0

DRUGS (6)
  1. FORZATEN 40 MG/ 10 MG [Suspect]
     Indication: HYPERTENSION
     Dosage: 40/10 MG, QD
     Route: 048
     Dates: start: 20140227, end: 20140424
  2. ASAFLOW [Suspect]
     Indication: AORTITIS
     Dosage: 80 MG, QD
     Dates: start: 2012
  3. EMCORETIC [Suspect]
     Indication: HYPERTENSION
     Dosage: 10/25 MG, QD
     Dates: start: 2000
  4. CRESTOR [Suspect]
     Indication: HYPERCHOLESTEROLAEMIA
     Dosage: 10 MG, QD
     Dates: start: 2005
  5. LEVODOPA [Suspect]
     Indication: PARKINSON^S DISEASE
     Dosage: 125 MG, TID
     Dates: start: 2011
  6. GLUCOPHAGE [Concomitant]
     Indication: DIABETES MELLITUS
     Dosage: 850 MG, QD
     Dates: start: 2010

REACTIONS (2)
  - Weight decreased [Recovered/Resolved]
  - Diarrhoea [Recovered/Resolved]
